FAERS Safety Report 7808402-8 (Version None)
Quarter: 2011Q4

REPORT INFORMATION
  Report Type: 
  Country: None (occurrence: None)
  Receive Date: 20111011
  Receipt Date: 20111011
  Transmission Date: 20120403
  Serious: No
  Sender: FDA-Public Use
  Company Number: None

PATIENT
  Sex: Male
  Weight: 102.5129 kg

DRUGS (2)
  1. FLUTICASONE PROPIONATE [Suspect]
     Indication: SINUS CONGESTION
     Dosage: TWO SPRAY DAILY NASAL INHALATION
     Route: 055
     Dates: start: 20110823
  2. FLUTICASONE PROPIONATE [Suspect]
     Indication: MULTIPLE ALLERGIES
     Dosage: TWO SPRAY DAILY NASAL INHALATION
     Route: 055
     Dates: start: 20110823

REACTIONS (1)
  - HEADACHE [None]
